FAERS Safety Report 15616130 (Version 3)
Quarter: 2018Q4

REPORT INFORMATION
  Report Type: Spontaneous
  Country: US (occurrence: US)
  Receive Date: 20181114
  Receipt Date: 20181203
  Transmission Date: 20190205
  Serious: Yes (Hospitalization)
  Sender: FDA-Public Use
  Company Number: US-HORIZON-DUE-0623-2018

PATIENT
  Age: 56 Year
  Sex: Female

DRUGS (5)
  1. DUEXIS [Suspect]
     Active Substance: FAMOTIDINE\IBUPROFEN
     Indication: ARTHRITIS
     Dosage: 2-3 TABLETS A DAY, 4 SOMETIMES DEPENDING ON THE SEVERITY
     Dates: end: 20181106
  2. PRAVASTATIN. [Concomitant]
     Active Substance: PRAVASTATIN
  3. TOPAMAX [Concomitant]
     Active Substance: TOPIRAMATE
  4. ASPIRIN. [Concomitant]
     Active Substance: ASPIRIN
  5. METFORMIN [Concomitant]
     Active Substance: METFORMIN HYDROCHLORIDE

REACTIONS (3)
  - Off label use [Unknown]
  - Chest pain [Recovered/Resolved]
  - Pruritus [Recovering/Resolving]

NARRATIVE: CASE EVENT DATE: 20180922
